FAERS Safety Report 24245266 (Version 1)
Quarter: 2024Q3

REPORT INFORMATION
  Report Type: Spontaneous
  Country: ES (occurrence: None)
  Receive Date: 20240824
  Receipt Date: 20240824
  Transmission Date: 20241017
  Serious: Yes (Death, Hospitalization)
  Sender: ASTRAZENECA
  Company Number: 2024A189273

PATIENT
  Age: 74 Year
  Sex: Female

DRUGS (5)
  1. TAGRISSO [Suspect]
     Active Substance: OSIMERTINIB
     Indication: Lung adenocarcinoma stage II
     Route: 048
     Dates: start: 20240327, end: 20240612
  2. CALCIFEDIOL [Concomitant]
     Active Substance: CALCIFEDIOL
     Route: 048
     Dates: start: 20230102
  3. OMEPRAZOLE [Concomitant]
     Active Substance: OMEPRAZOLE
     Route: 048
     Dates: start: 20211215
  4. LORAZEPAM [Concomitant]
     Active Substance: LORAZEPAM
     Dosage: ORFIDAL 1 MG, 1.5 TABLETS EVERY 24 HOURS
     Route: 048
     Dates: start: 20180928
  5. PARACETAMOL CINFA [Concomitant]
     Route: 048
     Dates: start: 20120726

REACTIONS (2)
  - Respiratory failure [Fatal]
  - Interstitial lung disease [Fatal]

NARRATIVE: CASE EVENT DATE: 20240612
